FAERS Safety Report 8756642 (Version 3)
Quarter: 2013Q2

REPORT INFORMATION
  Report Type: Spontaneous
  Country: US (occurrence: US)
  Receive Date: 20120828
  Receipt Date: 20130403
  Transmission Date: 20140414
  Serious: Yes (Hospitalization)
  Sender: FDA-Public Use
  Company Number: US-B.I. PHARMACEUTICALS,INC./RIDGEFIELD-2012-BP-20132BP

PATIENT
  Age: 65 Year
  Sex: Male
  Weight: 79.38 kg

DRUGS (5)
  1. PRADAXA [Suspect]
     Indication: ANTICOAGULANT THERAPY
     Dosage: 300 MG
     Dates: start: 20110921, end: 20111021
  2. PRADAXA [Suspect]
     Indication: ATRIAL FIBRILLATION
  3. MULTAQ [Concomitant]
     Dosage: 800 MG
  4. PLAQUENIL [Concomitant]
     Dosage: 20 MG
  5. PREDNISONE [Concomitant]
     Dosage: 10 MG

REACTIONS (3)
  - Gastrointestinal haemorrhage [Unknown]
  - Anaemia [Unknown]
  - Atrial fibrillation [Recovered/Resolved]
